FAERS Safety Report 10469236 (Version 3)
Quarter: 2014Q4

REPORT INFORMATION
  Report Type: Spontaneous
  Country: IT (occurrence: None)
  Receive Date: 20140919
  Receipt Date: 20141117
  Transmission Date: 20150528
  Serious: Yes (Hospitalization)
  Sender: FDA-Public Use
  Company Number: 2014MPI01137

PATIENT
  Age: 50 Year
  Sex: Male
  Weight: 100 kg

DRUGS (5)
  1. SALINE [Suspect]
     Active Substance: SODIUM CHLORIDE
  2. DACARBAZINE (DACARBAZINE) INJECTION [Suspect]
     Active Substance: DACARBAZINE
     Indication: HODGKIN^S DISEASE
     Route: 042
     Dates: start: 20140604, end: 20140827
  3. BRENTUXIMAB VEDOTIN (BRENTUXIMAB VEDOTIN) INJECTION [Suspect]
     Active Substance: BRENTUXIMAB VEDOTIN
     Indication: HODGKIN^S DISEASE
     Route: 042
     Dates: start: 20140604, end: 20140827
  4. DOXORUBICIN (DOXORUBICIN) INJECTION [Suspect]
     Active Substance: DOXORUBICIN
     Indication: HODGKIN^S DISEASE
     Route: 042
     Dates: start: 20140604, end: 20140827
  5. VINBLASTINE (VINBLASTINE SULFATE) INJECTION [Suspect]
     Active Substance: VINBLASTINE
     Indication: HODGKIN^S DISEASE
     Route: 042
     Dates: start: 20140604, end: 20140827

REACTIONS (9)
  - Heart rate increased [None]
  - Venous thrombosis [None]
  - Sepsis [None]
  - Blood pressure decreased [None]
  - Electrocardiogram QT prolonged [None]
  - Dyspnoea [None]
  - Acute kidney injury [None]
  - General physical health deterioration [None]
  - Sinus tachycardia [None]

NARRATIVE: CASE EVENT DATE: 20140901
